FAERS Safety Report 15705758 (Version 1)
Quarter: 2018Q4

REPORT INFORMATION
  Report Type: Spontaneous
  Country: IT (occurrence: IT)
  Receive Date: 20181210
  Receipt Date: 20181210
  Transmission Date: 20190205
  Serious: Yes (Death)
  Sender: FDA-Public Use
  Company Number: IT-SA-2018SA335736

PATIENT
  Age: 32 Year
  Sex: Male

DRUGS (5)
  1. METHENOLONE [Suspect]
     Active Substance: METHENOLONE
     Indication: DRUG ABUSE
  2. CLOMIFENE CITRATE [Suspect]
     Active Substance: CLOMIPHENE
  3. LORAZEPAM. [Suspect]
     Active Substance: LORAZEPAM
  4. STANOZOLOL [Suspect]
     Active Substance: STANOZOLOL
     Indication: DRUG ABUSE
  5. OXANDROLONE. [Suspect]
     Active Substance: OXANDROLONE
     Indication: DRUG ABUSE

REACTIONS (2)
  - Testicular atrophy [Fatal]
  - Muscle mass [Fatal]
